FAERS Safety Report 18062988 (Version 1)
Quarter: 2020Q3

REPORT INFORMATION
  Report Type: Spontaneous
  Country: ES (occurrence: ES)
  Receive Date: 20200724
  Receipt Date: 20200724
  Transmission Date: 20201103
  Serious: Yes (Life-Threatening)
  Sender: FDA-Public Use
  Company Number: ES-SUN PHARMACEUTICAL INDUSTRIES LTD-2020RR-254562

PATIENT
  Age: 44 Year
  Sex: Male

DRUGS (3)
  1. AZITHROMYCIN ANHYDROUS. [Suspect]
     Active Substance: AZITHROMYCIN ANHYDROUS
     Indication: COVID-19 TREATMENT
     Dosage: 500 MG/24 FIRST DAY THEN LOWER DOSIS TO 250 MG/24
     Route: 065
     Dates: start: 20200406, end: 20200414
  2. LOPINAVIR (1271A) [Suspect]
     Active Substance: LOPINAVIR
     Indication: COVID-19 TREATMENT
     Dosage: 200/50 2 TABLETS/12 HOURS
     Route: 065
     Dates: start: 20200406, end: 20200409
  3. HIDROXICLOROQUINA (2143A) [Suspect]
     Active Substance: HYDROXYCHLOROQUINE
     Indication: COVID-19 TREATMENT
     Dosage: 400 MILLIGRAM, DAILY
     Route: 065
     Dates: start: 20200406, end: 20200414

REACTIONS (1)
  - Atrial fibrillation [Unknown]

NARRATIVE: CASE EVENT DATE: 20200421
